FAERS Safety Report 13900342 (Version 1)
Quarter: 2017Q3

REPORT INFORMATION
  Report Type: Spontaneous
  Country: FR (occurrence: FR)
  Receive Date: 20170824
  Receipt Date: 20170824
  Transmission Date: 20171127
  Serious: Yes (Other)
  Sender: FDA-Public Use
  Company Number: FR-BAYER-2017-158661

PATIENT
  Age: 35 Year
  Sex: Female

DRUGS (1)
  1. MIRENA [Suspect]
     Active Substance: LEVONORGESTREL
     Indication: CHEMICAL CONTRACEPTION
     Dosage: 20 MCG/24HR, CONT
     Route: 015
     Dates: start: 20130131, end: 20170522

REACTIONS (7)
  - Libido decreased [Unknown]
  - Polymenorrhoea [Unknown]
  - Diffuse alopecia [Unknown]
  - Rash [Unknown]
  - Mood swings [Unknown]
  - Fatigue [Unknown]
  - Arthropathy [Unknown]

NARRATIVE: CASE EVENT DATE: 201302
